FAERS Safety Report 15358333 (Version 2)
Quarter: 2021Q3

REPORT INFORMATION
  Report Type: Spontaneous
  Country: US (occurrence: US)
  Receive Date: 20180906
  Receipt Date: 20210825
  Transmission Date: 20211014
  Serious: No
  Sender: FDA-Public Use
  Company Number: US-PERRIGO-18US008993

PATIENT
  Age: 75 Year
  Sex: Female
  Weight: 58.05 kg

DRUGS (4)
  1. EVAMIST [Suspect]
     Active Substance: ESTRADIOL
     Indication: HOT FLUSH
     Dosage: 1.53 MG, QD
     Route: 062
     Dates: start: 2018, end: 2018
  2. EVAMIST [Suspect]
     Active Substance: ESTRADIOL
     Dosage: UNKNOWN, UNKNOWN
     Route: 062
     Dates: end: 20210526
  3. EVAMIST [Suspect]
     Active Substance: ESTRADIOL
     Indication: HORMONE REPLACEMENT THERAPY
     Dosage: UNKNOWN, QD
     Route: 062
     Dates: start: 20180903
  4. EVAMIST [Suspect]
     Active Substance: ESTRADIOL
     Dosage: UNKNOWN, UNKNOWN
     Route: 062
     Dates: start: 20210527, end: 202107

REACTIONS (2)
  - Night sweats [Unknown]
  - Incorrect dose administered [Unknown]

NARRATIVE: CASE EVENT DATE: 20180903
